FAERS Safety Report 10713261 (Version 1)
Quarter: 2015Q1

REPORT INFORMATION
  Report Type: Spontaneous
  Country: AT (occurrence: AT)
  Receive Date: 20150115
  Receipt Date: 20150115
  Transmission Date: 20150721
  Serious: Yes (Other)
  Sender: FDA-Public Use
  Company Number: AT-ASTRAZENECA-2015SE03314

PATIENT
  Age: 60 Year
  Sex: Female

DRUGS (4)
  1. FASLODEX [Suspect]
     Active Substance: FULVESTRANT
     Route: 030
  2. FASLODEX [Suspect]
     Active Substance: FULVESTRANT
     Dosage: 500 MG TWICE A WEEK
     Route: 030
     Dates: start: 20121009
  3. ARIMIDEX [Suspect]
     Active Substance: ANASTROZOLE
     Route: 048
  4. NOLVADEX [Suspect]
     Active Substance: TAMOXIFEN CITRATE
     Route: 048
     Dates: start: 200011

REACTIONS (14)
  - Coronary artery disease [Unknown]
  - Pseudarthrosis [Unknown]
  - Erysipelas [Unknown]
  - Intervertebral disc protrusion [Unknown]
  - Vertebral foraminal stenosis [Unknown]
  - Rotator cuff syndrome [Unknown]
  - Lumbar spinal stenosis [Unknown]
  - Uterine leiomyoma [Unknown]
  - Metastases to bone [Unknown]
  - Osteopenia [Unknown]
  - Pulmonary embolism [Unknown]
  - Renal failure [Unknown]
  - Bone formation increased [Unknown]
  - Lymphoedema [Unknown]

NARRATIVE: CASE EVENT DATE: 20011102
